FAERS Safety Report 8923477 (Version 1)
Quarter: 2012Q4

REPORT INFORMATION
  Report Type: 
  Country: US (occurrence: US)
  Receive Date: 20121123
  Receipt Date: 20121123
  Transmission Date: 20130627
  Serious: No
  Sender: FDA-Public Use
  Company Number: US-BAYER-2012-121295

PATIENT
  Age: 77 Year
  Sex: Female
  Weight: 52.15 kg

DRUGS (10)
  1. ALEVE CAPLET/TABLET,MIDOL EXTENDED RELIEF CAPLET [Suspect]
     Indication: ARTHRITIS
     Dosage: UNK DF, UNK
     Route: 048
     Dates: start: 20121109
  2. OXYCODONE [Concomitant]
     Dosage: UNK
  3. LIPITOR [Concomitant]
     Dosage: UNK
  4. XANAX [Concomitant]
     Dosage: UNK
  5. CALCIUM [Concomitant]
  6. VITAMIN D3 [Concomitant]
  7. MEGA RED [Concomitant]
  8. IRON [FERROUS SULFATE] [Concomitant]
  9. CELEBREX [Concomitant]
  10. PRILOSEC [Concomitant]

REACTIONS (1)
  - Drug ineffective [None]
